FAERS Safety Report 12625745 (Version 1)
Quarter: 2016Q3

REPORT INFORMATION
  Report Type: Spontaneous
  Country: FR (occurrence: FR)
  Receive Date: 20160805
  Receipt Date: 20160805
  Transmission Date: 20161109
  Serious: Yes (Death, Hospitalization)
  Sender: FDA-Public Use
  Company Number: FR-PFIZER INC-2016374609

PATIENT
  Age: 69 Year
  Sex: Male

DRUGS (14)
  1. PREVISCAN [Suspect]
     Active Substance: FLUINDIONE
     Dosage: 0.5 DF, DAILY
     Route: 048
     Dates: start: 20160608, end: 20160617
  2. KARDEGIC [Concomitant]
     Active Substance: ASPIRIN LYSINE
     Dosage: UNK
  3. AMOXICILLIN/CLAVULANIC ACID SANDOZ [Suspect]
     Active Substance: AMOXICILLIN\CLAVULANIC ACID
     Indication: SKIN ULCER
     Dosage: UNK
     Route: 048
     Dates: start: 20160608, end: 20160617
  4. LASILIX [Concomitant]
     Active Substance: FUROSEMIDE
     Dosage: UNK (10MG/H)
     Dates: start: 20160617
  5. PARACETAMOL [Suspect]
     Active Substance: ACETAMINOPHEN
  6. BISOPROLOL [Suspect]
     Active Substance: BISOPROLOL
     Dosage: 1.5 DF, 2X/DAY
     Route: 048
     Dates: start: 20160608, end: 20160617
  7. METFORMIN [Concomitant]
     Active Substance: METFORMIN HYDROCHLORIDE
     Dosage: UNK
  8. TRAMADOL. [Concomitant]
     Active Substance: TRAMADOL
     Dosage: UNK
  9. LEVEMIR [Concomitant]
     Active Substance: INSULIN DETEMIR
     Dosage: UNK
  10. AMAREL [Concomitant]
     Active Substance: GLIMEPIRIDE
     Dosage: UNK
  11. NOVORAPID [Concomitant]
     Active Substance: INSULIN ASPART
     Dosage: UNK
  12. CORDARONE [Suspect]
     Active Substance: AMIODARONE HYDROCHLORIDE
     Dosage: UNK
     Route: 048
     Dates: start: 20160608
  13. FLAGYL [Suspect]
     Active Substance: METRONIDAZOLE\METRONIDAZOLE HYDROCHLORIDE
     Indication: SKIN ULCER
     Dosage: UNK
     Route: 048
     Dates: start: 20160608, end: 20160617
  14. ADENURIC [Concomitant]
     Active Substance: FEBUXOSTAT
     Dosage: UNK

REACTIONS (3)
  - Vascular purpura [Recovering/Resolving]
  - Renal failure [Fatal]
  - Drug-induced liver injury [Not Recovered/Not Resolved]

NARRATIVE: CASE EVENT DATE: 20160613
